FAERS Safety Report 13196988 (Version 1)
Quarter: 2017Q1

REPORT INFORMATION
  Report Type: Spontaneous
  Country: ES (occurrence: ES)
  Receive Date: 20170208
  Receipt Date: 20170208
  Transmission Date: 20170428
  Serious: Yes (Other)
  Sender: FDA-Public Use
  Company Number: ES-PFIZER INC-2017046272

PATIENT
  Sex: Male

DRUGS (1)
  1. PRISTIQ EXTENDED-RELEASE [Suspect]
     Active Substance: DESVENLAFAXINE SUCCINATE
     Dosage: UNK

REACTIONS (1)
  - Cerebrovascular accident [Recovered/Resolved]
